FAERS Safety Report 16499977 (Version 2)
Quarter: 2020Q3

REPORT INFORMATION
  Report Type: Spontaneous
  Country: ES (occurrence: ES)
  Receive Date: 20190701
  Receipt Date: 20200704
  Transmission Date: 20201102
  Serious: Yes (Hospitalization)
  Sender: FDA-Public Use
  Company Number: ES-AUROBINDO-AUR-APL-2019-038313

PATIENT
  Age: 34 Year
  Sex: Female

DRUGS (3)
  1. ENANTYUM [Suspect]
     Active Substance: DEXKETOPROFEN TROMETAMOL
     Indication: ANALGESIC THERAPY
     Dosage: 25 MILLIGRAM, 3 DAY
     Route: 065
     Dates: start: 20180823, end: 20180917
  2. ZINNAT [Suspect]
     Active Substance: CEFUROXIME
     Indication: BIOPSY MUSCLE
     Dosage: 500 MILLIGRAM, EVERY OTHER DAY (2 DAY), 1000 MG
     Route: 065
     Dates: start: 20180823, end: 20180917
  3. TRAMADOL. [Suspect]
     Active Substance: TRAMADOL
     Indication: ANALGESIC THERAPY
     Dosage: 300 MILLIGRAM, ONCE A DAY
     Route: 065
     Dates: start: 20180913, end: 20180917

REACTIONS (3)
  - Balance disorder [Recovered/Resolved]
  - Dizziness [Recovered/Resolved]
  - Headache [Recovered/Resolved]

NARRATIVE: CASE EVENT DATE: 20180917
